FAERS Safety Report 8601274 (Version 3)
Quarter: 2012Q4

REPORT INFORMATION
  Report Type: 
  Country: US (occurrence: US)
  Receive Date: 20120606
  Receipt Date: 20121025
  Transmission Date: 20130627
  Serious: Yes (Hospitalization)
  Sender: FDA-Public Use
  Company Number: US-GLAXOSMITHKLINE-A0980111A

PATIENT
  Sex: Female

DRUGS (1)
  1. ALLI [Suspect]
     Indication: PRODUCT USED FOR UNKNOWN INDICATION
     Dosage: 60MG Three times per day
     Route: 048
     Dates: start: 200702, end: 200812

REACTIONS (1)
  - Hepatic encephalopathy [Recovering/Resolving]
